FAERS Safety Report 17579190 (Version 3)
Quarter: 2021Q4

REPORT INFORMATION
  Report Type: Other
  Country: US (occurrence: US)
  Receive Date: 20200325
  Receipt Date: 20211028
  Transmission Date: 20220303
  Serious: Yes (Other)
  Sender: FDA-Public Use
  Company Number: US-ROCHE-2568846

PATIENT
  Sex: Female

DRUGS (6)
  1. ACTEMRA [Suspect]
     Active Substance: TOCILIZUMAB
     Indication: Rheumatoid arthritis
     Route: 058
  2. ACTEMRA [Suspect]
     Active Substance: TOCILIZUMAB
  3. ACTEMRA [Suspect]
     Active Substance: TOCILIZUMAB
  4. ACTEMRA [Suspect]
     Active Substance: TOCILIZUMAB
     Indication: Osteoarthritis
  5. ACTEMRA [Suspect]
     Active Substance: TOCILIZUMAB
  6. ACTEMRA [Suspect]
     Active Substance: TOCILIZUMAB

REACTIONS (3)
  - Hepatic function abnormal [Unknown]
  - Weight decreased [Unknown]
  - Abdominal pain upper [Unknown]
